FAERS Safety Report 9159920 (Version 1)
Quarter: 2013Q1

REPORT INFORMATION
  Report Type: Spontaneous
  Country: US (occurrence: US)
  Receive Date: 20130313
  Receipt Date: 20130313
  Transmission Date: 20140127
  Serious: No
  Sender: FDA-Public Use
  Company Number: US-B.I. PHARMACEUTICALS,INC./RIDGEFIELD-2013-BI-06200BP

PATIENT
  Age: 61 Year
  Sex: Male

DRUGS (5)
  1. VIRAMUNE [Suspect]
     Indication: HIV INFECTION
     Dosage: 400 MG
     Route: 048
     Dates: start: 2000, end: 20130219
  2. ZIAGEN [Concomitant]
     Dosage: 600 MG
     Route: 048
  3. SUSTIVA [Concomitant]
     Dosage: 600 MG
     Route: 048
  4. ENTRIVA [Concomitant]
     Dosage: 200 MG
     Route: 048
  5. NEVIRAPINE [Concomitant]
     Dosage: 400 MG
     Route: 048
     Dates: start: 20130219

REACTIONS (3)
  - Constipation [Not Recovered/Not Resolved]
  - Abdominal pain [Not Recovered/Not Resolved]
  - Blood creatinine increased [Recovered/Resolved]
